FAERS Safety Report 19549533 (Version 1)
Quarter: 2021Q3

REPORT INFORMATION
  Report Type: Spontaneous
  Country: US (occurrence: US)
  Receive Date: 20210714
  Receipt Date: 20210714
  Transmission Date: 20211014
  Serious: Yes (Other)
  Sender: FDA-Public Use
  Company Number: US-TERSERA THERAPEUTICS LLC-2021TRS003290

PATIENT

DRUGS (2)
  1. PRIALT [Suspect]
     Active Substance: ZICONOTIDE ACETATE
     Indication: PANCREATITIS
     Dosage: 2.702 MCG, QD (PER DAY)
     Route: 037
     Dates: start: 202106
  2. PRIALT [Suspect]
     Active Substance: ZICONOTIDE ACETATE
     Indication: PAIN
     Dosage: 1.2 MCG, QD (PER DAY)
     Route: 037

REACTIONS (4)
  - Loss of consciousness [Unknown]
  - Neck pain [Unknown]
  - Headache [Unknown]
  - Head injury [Unknown]

NARRATIVE: CASE EVENT DATE: 2021
